FAERS Safety Report 7349467-X (Version None)
Quarter: 2011Q1

REPORT INFORMATION
  Report Type: 
  Country: None (occurrence: None)
  Receive Date: 20110314
  Receipt Date: 20100519
  Transmission Date: 20110831
  Serious: Yes (Hospitalization)
  Sender: FDA-Public Use
  Company Number: US-ABBOTT-10P-163-0646020-00

PATIENT
  Age: 3 Year
  Sex: Female

DRUGS (4)
  1. DILANTIN [Suspect]
     Dosage: 125 MG/5 ML
     Route: 048
  2. DEPAKOTE [Suspect]
     Dosage: 125 MILLIGRAM
     Route: 048
  3. CHILDREN'S TYLENOL SUSPENSION [Suspect]
     Indication: PYREXIA
     Dosage: 160 MG/5 ML
     Route: 048
  4. LAMICTAL [Suspect]
     Route: 048

REACTIONS (1)
  - LIVER FUNCTION TEST ABNORMAL [None]
